FAERS Safety Report 10674061 (Version 1)
Quarter: 2014Q4

REPORT INFORMATION
  Report Type: Spontaneous
  Country: FR (occurrence: FR)
  Receive Date: 20141224
  Receipt Date: 20141224
  Transmission Date: 20150529
  Serious: Yes (Hospitalization)
  Sender: FDA-Public Use
  Company Number: FR-SA-2014SA173668

PATIENT
  Age: 58 Year
  Sex: Female
  Weight: 65 kg

DRUGS (14)
  1. LASILIX [Suspect]
     Active Substance: FUROSEMIDE
     Route: 065
  2. COVERSYL [Suspect]
     Active Substance: PERINDOPRIL
     Route: 048
  3. KREDEX [Suspect]
     Active Substance: CARVEDILOL
     Route: 048
  4. CALCIPARINE [Concomitant]
     Active Substance: HEPARIN CALCIUM
     Route: 058
  5. HUMALOG [Concomitant]
     Active Substance: INSULIN LISPRO
     Route: 058
  6. KALEORID [Concomitant]
     Active Substance: POTASSIUM CHLORIDE
     Dosage: STRENGTH: 600 MG
     Route: 048
  7. GENTAMICIN. [Suspect]
     Active Substance: GENTAMICIN
     Indication: INFECTION
     Route: 048
     Dates: start: 201404, end: 201404
  8. LANTUS [Concomitant]
     Active Substance: INSULIN GLARGINE
     Route: 058
  9. ESIDREX [Suspect]
     Active Substance: HYDROCHLOROTHIAZIDE
     Dosage: STRENGTH: 25 MG
     Route: 048
  10. VANCOMYCINE [Suspect]
     Active Substance: VANCOMYCIN
     Indication: INFECTION
     Route: 048
     Dates: start: 201404, end: 201404
  11. PREVISCAN [Suspect]
     Active Substance: FLUINDIONE
     Route: 065
  12. TIOTROPIUM BROMIDE [Suspect]
     Active Substance: TIOTROPIUM BROMIDE
     Route: 048
  13. PLAVIX [Concomitant]
     Active Substance: CLOPIDOGREL BISULFATE
     Dosage: STRENGTH: 75 MG
     Route: 048
  14. TAHOR [Concomitant]
     Active Substance: ATORVASTATIN CALCIUM
     Dosage: STRENGTH: 40 MG
     Route: 048

REACTIONS (2)
  - Renal tubular necrosis [Recovered/Resolved]
  - Acute kidney injury [Recovered/Resolved]

NARRATIVE: CASE EVENT DATE: 201404
